FAERS Safety Report 20680866 (Version 1)
Quarter: 2022Q2

REPORT INFORMATION
  Report Type: Spontaneous
  Country: HU (occurrence: HU)
  Receive Date: 20220406
  Receipt Date: 20220406
  Transmission Date: 20220721
  Serious: Yes (Death, Hospitalization, Other)
  Sender: FDA-Public Use
  Company Number: HU-NOVARTISPH-NVSC2022HU077775

PATIENT
  Age: 74 Year
  Sex: Female
  Weight: 95 kg

DRUGS (10)
  1. RIBOCICLIB [Suspect]
     Active Substance: RIBOCICLIB
     Indication: Invasive lobular breast carcinoma
     Dosage: 600 MG
     Route: 065
     Dates: start: 201910, end: 202012
  2. LETROZOLE [Suspect]
     Active Substance: LETROZOLE
     Indication: Invasive lobular breast carcinoma
     Dosage: UNK
     Route: 065
     Dates: start: 201910, end: 202012
  3. ESCITALOPRAM [Suspect]
     Active Substance: ESCITALOPRAM OXALATE
     Indication: Invasive lobular breast carcinoma
     Dosage: UNK
     Route: 065
  4. MIRTAZAPINE [Suspect]
     Active Substance: MIRTAZAPINE
     Indication: Invasive lobular breast carcinoma
     Dosage: UNK
     Route: 065
  5. TRAMADOL [Suspect]
     Active Substance: TRAMADOL
     Indication: Invasive lobular breast carcinoma
     Dosage: 50 MG
     Route: 065
  6. CLONAZEPAM [Concomitant]
     Active Substance: CLONAZEPAM
     Indication: Product used for unknown indication
     Dosage: UNK
     Route: 065
  7. PIRACETAM [Concomitant]
     Active Substance: PIRACETAM
     Indication: Product used for unknown indication
     Dosage: UNK
     Route: 065
  8. HYDROCHLOROTHIAZIDE\RAMIPRIL [Concomitant]
     Active Substance: HYDROCHLOROTHIAZIDE\RAMIPRIL
     Indication: Product used for unknown indication
     Dosage: UNK
     Route: 065
  9. FAMOTIDINE [Concomitant]
     Active Substance: FAMOTIDINE
     Indication: Product used for unknown indication
     Dosage: UNK
     Route: 065
  10. ENOXAPARIN [Concomitant]
     Active Substance: ENOXAPARIN
     Indication: Product used for unknown indication
     Dosage: UNK
     Route: 065

REACTIONS (17)
  - Death [Fatal]
  - Asphyxia [Unknown]
  - Hydrothorax [Unknown]
  - Pericardial effusion [Unknown]
  - Metastases to skin [Unknown]
  - Renal impairment [Unknown]
  - Metastases to lymph nodes [Unknown]
  - Metastases to heart [Unknown]
  - Depression [Unknown]
  - Hypertension [Unknown]
  - Arteriosclerosis [Unknown]
  - Gastritis [Unknown]
  - White blood cell count increased [Unknown]
  - Anaemia [Unknown]
  - Back pain [Unknown]
  - Asthenia [Unknown]
  - Bone lesion [Unknown]

NARRATIVE: CASE EVENT DATE: 20190101
